FAERS Safety Report 21003677 (Version 1)
Quarter: 2022Q2

REPORT INFORMATION
  Report Type: Spontaneous
  Country: CN (occurrence: None)
  Receive Date: 20220624
  Receipt Date: 20220624
  Transmission Date: 20220721
  Serious: Yes (Other)
  Sender: FDA-Public Use
  Company Number: 2022A226341

PATIENT
  Age: 46 Year
  Sex: Male
  Weight: 76 kg

DRUGS (1)
  1. OSIMERTINIB MESYLATE [Suspect]
     Active Substance: OSIMERTINIB MESYLATE
     Indication: Targeted cancer therapy
     Route: 048
     Dates: start: 20220408, end: 20220525

REACTIONS (4)
  - Interstitial lung disease [Recovering/Resolving]
  - Pericardial effusion [Unknown]
  - Metastases to bone [Unknown]
  - Wheezing [Unknown]

NARRATIVE: CASE EVENT DATE: 20220525
